FAERS Safety Report 12586581 (Version 2)
Quarter: 2016Q4

REPORT INFORMATION
  Report Type: Spontaneous
  Country: US (occurrence: US)
  Receive Date: 20160725
  Receipt Date: 20161005
  Transmission Date: 20170207
  Serious: No
  Sender: FDA-Public Use
  Company Number: US-PFIZER INC-2016324515

PATIENT
  Age: 77 Year
  Sex: Female
  Weight: 103 kg

DRUGS (2)
  1. IBUPROFEN. [Suspect]
     Active Substance: IBUPROFEN
     Indication: BACK PAIN
     Dosage: 600 MG, AS NEEDED
     Route: 048
     Dates: start: 2015
  2. THERMACARE HEATWRAPS [Concomitant]
     Active Substance: ACTIVATED CHARCOAL\IRON\SODIUM
     Indication: BACK PAIN
     Dosage: UNK
     Dates: start: 20160624, end: 20160625

REACTIONS (1)
  - Drug ineffective [Unknown]
